FAERS Safety Report 5831581-9 (Version None)
Quarter: 2008Q3

REPORT INFORMATION
  Report Type: 
  Country: None (occurrence: None)
  Receive Date: 20080730
  Receipt Date: 20080721
  Transmission Date: 20090109
  Serious: Yes (Other)
  Sender: FDA-Public Use
  Company Number: 2008AL007837

PATIENT
  Age: 54 Year
  Sex: Male
  Weight: 90.7194 kg

DRUGS (2)
  1. DIGOXIN [Suspect]
     Indication: HEART RATE INCREASED
     Dosage: 0.125 MG, QD, PO
     Route: 048
     Dates: start: 20080401, end: 20080401
  2. DIGOXIN [Suspect]
     Indication: HEART RATE INCREASED
     Dosage: 0.25 MG DAILY PO
     Route: 048
     Dates: start: 20080303, end: 20080401

REACTIONS (5)
  - DIARRHOEA [None]
  - DIZZINESS [None]
  - FLATULENCE [None]
  - THERAPEUTIC AGENT TOXICITY [None]
  - VOMITING [None]
